FAERS Safety Report 5537760-2 (Version None)
Quarter: 2007Q4

REPORT INFORMATION
  Report Type: 
  Country: None (occurrence: None)
  Receive Date: 20071207
  Receipt Date: 20071127
  Transmission Date: 20080405
  Serious: Yes (Disabling, Other)
  Sender: FDA-Public Use
  Company Number: US-PFIZER INC-2007028903

PATIENT
  Sex: Female
  Weight: 90.7 kg

DRUGS (6)
  1. LIPITOR [Suspect]
     Indication: BLOOD CHOLESTEROL INCREASED
     Dates: start: 19990101, end: 20020301
  2. LIPITOR [Suspect]
     Indication: CORONARY ARTERY DISEASE
  3. LIPITOR [Suspect]
     Indication: HYPERLIPIDAEMIA
  4. ALTACE [Concomitant]
  5. TRAZODONE HCL [Concomitant]
  6. PAXIL [Concomitant]

REACTIONS (45)
  - ABASIA [None]
  - ABDOMINAL DISTENSION [None]
  - ABDOMINAL PAIN UPPER [None]
  - ANEURYSM [None]
  - ANGINA PECTORIS [None]
  - ARTHRITIS [None]
  - ASTHENIA [None]
  - BENIGN RENAL NEOPLASM [None]
  - BLADDER DISORDER [None]
  - BLOOD CREATINE PHOSPHOKINASE MM INCREASED [None]
  - BLOOD URINE PRESENT [None]
  - BREAST MASS [None]
  - CARDIAC FAILURE CONGESTIVE [None]
  - CARDIOMEGALY [None]
  - CAROTID ARTERY OCCLUSION [None]
  - DIABETES MELLITUS [None]
  - DIZZINESS [None]
  - DYSPNOEA EXERTIONAL [None]
  - FATIGUE [None]
  - FLATULENCE [None]
  - FOOT DEFORMITY [None]
  - GOUT [None]
  - HEART RATE ABNORMAL [None]
  - HYPOAESTHESIA [None]
  - ILL-DEFINED DISORDER [None]
  - LUNG DISORDER [None]
  - MAJOR DEPRESSION [None]
  - MALAISE [None]
  - MUSCLE ENZYME INCREASED [None]
  - MUSCLE INJURY [None]
  - MUSCLE SPASMS [None]
  - MUSCULAR WEAKNESS [None]
  - MYALGIA [None]
  - NERVOUS SYSTEM DISORDER [None]
  - NEUROPATHY [None]
  - OEDEMA PERIPHERAL [None]
  - OSTEOPOROSIS [None]
  - RASH [None]
  - RHABDOMYOLYSIS [None]
  - TENDONITIS [None]
  - THYROID DISORDER [None]
  - TRANSIENT ISCHAEMIC ATTACK [None]
  - URINARY TRACT INFECTION [None]
  - VASCULAR OCCLUSION [None]
  - WEIGHT INCREASED [None]
